FAERS Safety Report 15661919 (Version 2)
Quarter: 2018Q4

REPORT INFORMATION
  Report Type: Spontaneous
  Country: ES (occurrence: ES)
  Receive Date: 20181127
  Receipt Date: 20181203
  Transmission Date: 20190205
  Serious: Yes (Life-Threatening, Hospitalization)
  Sender: FDA-Public Use
  Company Number: ES-BRACCO-2018ES06023

PATIENT
  Age: 61 Year
  Sex: Female

DRUGS (1)
  1. PROHANCE [Suspect]
     Active Substance: GADOTERIDOL
     Indication: NUCLEAR MAGNETIC RESONANCE IMAGING
     Dosage: 7 ML, SINGLE, AT SPEED OF 3 ML/SEC
     Route: 042
     Dates: start: 20181114, end: 20181114

REACTIONS (1)
  - Cardio-respiratory arrest [Recovering/Resolving]

NARRATIVE: CASE EVENT DATE: 20181114
